FAERS Safety Report 21003647 (Version 1)
Quarter: 2022Q2

REPORT INFORMATION
  Report Type: Spontaneous
  Country: US (occurrence: None)
  Receive Date: 20220623
  Receipt Date: 20220623
  Transmission Date: 20220721
  Serious: Yes (Disabling)
  Sender: FDA-Public Use
  Company Number: None

PATIENT
  Age: 4 Year
  Sex: Male
  Weight: 18 kg

DRUGS (1)
  1. MIRALAX [Suspect]
     Active Substance: POLYETHYLENE GLYCOL 3350
     Indication: Constipation
     Dosage: FREQUENCY : DAILY;?
     Route: 048

REACTIONS (19)
  - Speech disorder developmental [None]
  - Autism spectrum disorder [None]
  - Auditory disorder [None]
  - Sensory processing disorder [None]
  - Attention deficit hyperactivity disorder [None]
  - Frustration tolerance decreased [None]
  - Aggression [None]
  - Psychomotor skills impaired [None]
  - Compulsions [None]
  - Onychophagia [None]
  - Compulsive lip biting [None]
  - Pain [None]
  - Emotional distress [None]
  - Emotional poverty [None]
  - Product complaint [None]
  - Product administered to patient of inappropriate age [None]
  - Product use issue [None]
  - Injury [None]
  - Dysbiosis [None]

NARRATIVE: CASE EVENT DATE: 20190101
